FAERS Safety Report 18322292 (Version 6)
Quarter: 2020Q4

REPORT INFORMATION
  Report Type: Report from Study
  Country: BR (occurrence: BR)
  Receive Date: 20200929
  Receipt Date: 20201203
  Transmission Date: 20210113
  Serious: Yes (Death, Life-Threatening)
  Sender: FDA-Public Use
  Company Number: BR-ROCHE-2681808

PATIENT
  Age: 20 Year
  Sex: Male
  Weight: 62 kg

DRUGS (67)
  1. DIPYRONE [Concomitant]
     Active Substance: DIPYRONE
     Indication: COVID-19
     Dates: start: 20200908, end: 20200908
  2. LIDOCAINE. [Concomitant]
     Active Substance: LIDOCAINE
     Dates: start: 20200903, end: 20200903
  3. QUETIAPINE. [Concomitant]
     Active Substance: QUETIAPINE
     Dates: start: 20200906, end: 20200908
  4. METHYLPREDNISOLONE. [Concomitant]
     Active Substance: METHYLPREDNISOLONE
     Dates: start: 20200910, end: 20200922
  5. POLYMYXIN [Concomitant]
     Active Substance: POLYMYXIN
     Dosage: 4.5 AMPULE
     Dates: start: 20200915, end: 20200916
  6. ENCRISE [Concomitant]
     Dosage: 1 AMPULE
     Dates: start: 20200922, end: 20200922
  7. OMEPRAZOLE. [Concomitant]
     Active Substance: OMEPRAZOLE
     Indication: PROPHYLAXIS AGAINST GASTROINTESTINAL ULCER
     Dates: start: 20200902
  8. CODEINE [Concomitant]
     Active Substance: CODEINE
     Indication: COUGH
     Dates: start: 20200902, end: 20200903
  9. DIPYRONE [Concomitant]
     Active Substance: DIPYRONE
     Dates: start: 20200915, end: 20200917
  10. MORPHINE [Concomitant]
     Active Substance: MORPHINE
     Dates: start: 20200921, end: 20200921
  11. ADRENALINE [Concomitant]
     Active Substance: EPINEPHRINE
     Indication: SEPTIC SHOCK
     Dates: start: 20200922, end: 20200922
  12. PRECEDEX [Concomitant]
     Active Substance: DEXMEDETOMIDINE HYDROCHLORIDE
     Dates: start: 20200902, end: 20200902
  13. BROMOPRIDE [Concomitant]
     Active Substance: BROMOPRIDE
     Dates: start: 20200902, end: 20200922
  14. DEXTROKETAMINE [Concomitant]
     Dates: start: 20200913, end: 20200913
  15. FENTANYL. [Concomitant]
     Active Substance: FENTANYL
     Indication: SEDATION
     Dates: start: 20200903, end: 20200908
  16. FENTANYL. [Concomitant]
     Active Substance: FENTANYL
     Dates: start: 20200922, end: 20200922
  17. METHADONE [Concomitant]
     Active Substance: METHADONE HYDROCHLORIDE
     Indication: COVID-19
     Dates: start: 20200908, end: 20200913
  18. LACTATED RINGERS SOLUTION [Concomitant]
     Active Substance: CALCIUM CHLORIDE\POTASSIUM CHLORIDE\SODIUM CHLORIDE\SODIUM LACTATE
     Dates: start: 20200913, end: 20200914
  19. CEFTRIAXONE. [Concomitant]
     Active Substance: CEFTRIAXONE
     Indication: ANTIBIOTIC PROPHYLAXIS
     Dates: start: 20200902, end: 20200909
  20. ENOXAPARIN [Concomitant]
     Active Substance: ENOXAPARIN
     Dates: start: 20200909, end: 20200922
  21. CODEINE [Concomitant]
     Active Substance: CODEINE
     Indication: COVID-19
  22. DIPYRONE [Concomitant]
     Active Substance: DIPYRONE
     Dates: start: 20200911, end: 20200911
  23. ROCURONIUM [Concomitant]
     Active Substance: ROCURONIUM BROMIDE
     Dates: start: 20200922, end: 20200922
  24. INSULIN REGULAR [Concomitant]
     Active Substance: INSULIN NOS
     Dates: start: 20200911, end: 20200911
  25. INSULIN REGULAR [Concomitant]
     Active Substance: INSULIN NOS
     Dates: start: 20200914, end: 20200922
  26. THIAMINE. [Concomitant]
     Active Substance: THIAMINE
     Dates: start: 20200915, end: 20200922
  27. LINEZOLID. [Concomitant]
     Active Substance: LINEZOLID
     Indication: BACTERIAL INFECTION
     Dates: start: 20200922, end: 20200922
  28. DEXAMETHASONE. [Concomitant]
     Active Substance: DEXAMETHASONE
     Indication: COVID-19 PNEUMONIA
     Dates: start: 20200902, end: 20200904
  29. DEXTROKETAMINE [Concomitant]
     Dates: start: 20200922, end: 20200922
  30. NORADRENALINE [Concomitant]
     Active Substance: NOREPINEPHRINE
     Dates: start: 20200921, end: 20200922
  31. INSULIN REGULAR [Concomitant]
     Active Substance: INSULIN NOS
     Dates: start: 20200909, end: 20200909
  32. INSULIN REGULAR [Concomitant]
     Active Substance: INSULIN NOS
     Dates: start: 20200905, end: 20200910
  33. MEROPENEM. [Concomitant]
     Active Substance: MEROPENEM
     Indication: PNEUMONIA
     Dates: start: 20200915, end: 20200916
  34. CIMETIDINE [Concomitant]
     Active Substance: CIMETIDINE
     Dates: start: 20200917, end: 20200923
  35. REMDESIVIR. [Suspect]
     Active Substance: REMDESIVIR
     Indication: COVID-19 PNEUMONIA
     Dosage: ON 11/SEP/2020, AT 15:15 MOST RECENT DOSE OF INTRAVENOUS REMDESIVIR (100 ML) PRIOR TO ADVERSE EVENT
     Route: 042
     Dates: start: 20200902
  36. AZITHROMYCIN ANHYDROUS. [Concomitant]
     Active Substance: AZITHROMYCIN ANHYDROUS
     Indication: ANTIBIOTIC PROPHYLAXIS
     Dates: start: 20200902, end: 20200902
  37. AZITHROMYCIN ANHYDROUS. [Concomitant]
     Active Substance: AZITHROMYCIN ANHYDROUS
     Dates: start: 20200904, end: 20200906
  38. DIPYRONE [Concomitant]
     Active Substance: DIPYRONE
     Dates: start: 20200919, end: 20200922
  39. PRECEDEX [Concomitant]
     Active Substance: DEXMEDETOMIDINE HYDROCHLORIDE
     Dates: start: 20200916, end: 20200922
  40. LIDOCAINE. [Concomitant]
     Active Substance: LIDOCAINE
     Dates: start: 20200922, end: 20200922
  41. NORADRENALINE [Concomitant]
     Active Substance: NOREPINEPHRINE
     Dates: start: 20200916, end: 20200916
  42. INSULIN REGULAR [Concomitant]
     Active Substance: INSULIN NOS
     Indication: HYPERGLYCAEMIA
     Dates: start: 20200903, end: 20200903
  43. HALDOL [Concomitant]
     Active Substance: HALOPERIDOL
     Dates: start: 20200906, end: 20200906
  44. VANCOMYCIN [Concomitant]
     Active Substance: VANCOMYCIN
     Dates: start: 20200915, end: 20200916
  45. DORMONID [Concomitant]
     Active Substance: MIDAZOLAM MALEATE
     Dates: start: 20200922, end: 20200922
  46. PROPOFOL. [Concomitant]
     Active Substance: PROPOFOL
     Dates: start: 20200908, end: 20200908
  47. TOCILIZUMAB. [Suspect]
     Active Substance: TOCILIZUMAB
     Indication: COVID-19 PNEUMONIA
     Dosage: ON 03/SEP/2020, AT 09:39 MOST RECENT DOSE OF BLINDED TOCILIZUMAB WAS ADMINISTERED PRIOR TO ADVERSE E
     Route: 042
     Dates: start: 20200902
  48. AZITHROMYCIN ANHYDROUS. [Concomitant]
     Active Substance: AZITHROMYCIN ANHYDROUS
     Dates: start: 20200908, end: 20200908
  49. DEXAMETHASONE. [Concomitant]
     Active Substance: DEXAMETHASONE
     Dates: start: 20200902, end: 20200902
  50. DEXTROKETAMINE [Concomitant]
     Indication: SEDATION
     Dates: start: 20200903, end: 20200903
  51. SUCCINYLCHOLINE [Concomitant]
     Active Substance: SUCCINYLCHOLINE
     Dates: start: 20200903, end: 20200903
  52. MORPHINE [Concomitant]
     Active Substance: MORPHINE
     Indication: DYSPNOEA
     Dates: start: 20200915, end: 20200916
  53. POLYMYXIN [Concomitant]
     Active Substance: POLYMYXIN
     Indication: PNEUMONIA
     Dosage: 9  AMPULE
     Dates: start: 20200915, end: 20200915
  54. DORMONID [Concomitant]
     Active Substance: MIDAZOLAM MALEATE
     Indication: SEDATION
     Dates: start: 20200903, end: 20200908
  55. OMEPRAZOLE. [Concomitant]
     Active Substance: OMEPRAZOLE
     Dates: start: 20200906, end: 20200906
  56. ENOXAPARIN [Concomitant]
     Active Substance: ENOXAPARIN
     Indication: THROMBOSIS PROPHYLAXIS
     Dates: start: 20200902, end: 20200907
  57. DIPYRONE [Concomitant]
     Active Substance: DIPYRONE
     Dates: start: 20200913, end: 20200913
  58. PRECEDEX [Concomitant]
     Active Substance: DEXMEDETOMIDINE HYDROCHLORIDE
     Indication: ANXIETY
     Dates: start: 20200908, end: 20200914
  59. ROCURONIUM [Concomitant]
     Active Substance: ROCURONIUM BROMIDE
     Indication: SEDATION
     Dates: start: 20200904, end: 20200906
  60. NORADRENALINE [Concomitant]
     Active Substance: NOREPINEPHRINE
     Indication: HYPOTENSION
     Dates: start: 20200903, end: 20200908
  61. NORADRENALINE [Concomitant]
     Active Substance: NOREPINEPHRINE
     Indication: COVID-19
     Dates: start: 20200914, end: 20200914
  62. QUETIAPINE. [Concomitant]
     Active Substance: QUETIAPINE
     Dates: start: 20200913, end: 20200922
  63. HALDOL [Concomitant]
     Active Substance: HALOPERIDOL
     Dates: start: 20200910, end: 20200910
  64. METHYLPREDNISOLONE. [Concomitant]
     Active Substance: METHYLPREDNISOLONE
     Indication: COVID-19 PNEUMONIA
     Dates: start: 20200905, end: 20200908
  65. VANCOMYCIN [Concomitant]
     Active Substance: VANCOMYCIN
     Indication: PNEUMONIA
     Dates: start: 20200915, end: 20200915
  66. PROPOFOL. [Concomitant]
     Active Substance: PROPOFOL
     Dates: start: 20200906, end: 20200906
  67. SCOPOLAMINE [Concomitant]
     Active Substance: SCOPOLAMINE
     Dates: start: 20200911, end: 20200916

REACTIONS (5)
  - Obstructive shock [Fatal]
  - Bacterial infection [Not Recovered/Not Resolved]
  - Septic shock [Fatal]
  - Pneumonia [Not Recovered/Not Resolved]
  - Pneumothorax [Not Recovered/Not Resolved]

NARRATIVE: CASE EVENT DATE: 20200916
